FAERS Safety Report 6464353-5 (Version None)
Quarter: 2009Q4

REPORT INFORMATION
  Report Type: 
  Country: None (occurrence: None)
  Receive Date: 20091201
  Receipt Date: 20091118
  Transmission Date: 20100525
  Serious: Yes (Other)
  Sender: FDA-Public Use
  Company Number: US-ELI_LILLY_AND_COMPANY-US200911005574

PATIENT
  Sex: Female

DRUGS (6)
  1. PROZAC [Suspect]
     Indication: EATING DISORDER
     Dosage: 40 MG, 2/D
     Route: 065
     Dates: start: 19830101, end: 20060101
  2. NEUROTIN                           /00949202/ [Concomitant]
     Dosage: UNK, UNKNOWN
     Route: 065
  3. SYNTHROID [Concomitant]
     Dosage: UNK, UNKNOWN
     Route: 065
  4. NEXIUM [Concomitant]
     Dosage: UNK, UNKNOWN
     Route: 065
  5. FENTANYL-100 [Concomitant]
     Dosage: UNK, UNKNOWN
     Route: 065
  6. ASACOL [Concomitant]
     Indication: IRRITABLE BOWEL SYNDROME
     Dosage: UNK, UNKNOWN
     Route: 065

REACTIONS (3)
  - CARCINOID TUMOUR [None]
  - CROHN'S DISEASE [None]
  - OFF LABEL USE [None]
